FAERS Safety Report 25766548 (Version 2)
Quarter: 2025Q3

REPORT INFORMATION
  Report Type: Other
  Country: CA (occurrence: CA)
  Receive Date: 20250905
  Receipt Date: 20250915
  Transmission Date: 20251021
  Serious: Yes (Hospitalization, Other)
  Sender: APOTEX
  Company Number: CA-APOTEX-2025AP007976

PATIENT
  Sex: Female

DRUGS (35)
  1. ELTROMBOPAG [Suspect]
     Active Substance: ELTROMBOPAG
     Indication: Aplastic anaemia
     Dosage: 75 MILLIGRAM, QD
     Route: 048
     Dates: start: 20250516, end: 2025
  2. ELTROMBOPAG [Suspect]
     Active Substance: ELTROMBOPAG
     Route: 065
     Dates: end: 2025
  3. ELTROMBOPAG [Suspect]
     Active Substance: ELTROMBOPAG
     Dosage: 100 MILLIGRAM, QD
     Route: 048
     Dates: start: 2025
  4. ELTROMBOPAG [Suspect]
     Active Substance: ELTROMBOPAG
     Dosage: 75 MILLIGRAM, QD
     Route: 048
     Dates: start: 2025
  5. ELTROMBOPAG [Suspect]
     Active Substance: ELTROMBOPAG
     Dosage: 100 MILLIGRAM, QD
     Route: 048
     Dates: start: 20250516
  6. CYCLOSPORINE [Suspect]
     Active Substance: CYCLOSPORINE
     Indication: Product used for unknown indication
     Dosage: 200 MILLIGRAM, BID
     Route: 065
  7. CYCLOSPORINE [Suspect]
     Active Substance: CYCLOSPORINE
     Dosage: 225 MILLIGRAM, BID
     Route: 065
     Dates: start: 20250703, end: 20250716
  8. CYCLOSPORINE [Suspect]
     Active Substance: CYCLOSPORINE
     Dosage: 250MG AM AND 225 MG PM, BID
     Route: 065
     Dates: start: 20250717, end: 20250728
  9. CYCLOSPORINE [Suspect]
     Active Substance: CYCLOSPORINE
     Dosage: 250 MILLIGRAM, BID
     Route: 065
     Dates: start: 20250729
  10. FAMOTIDINE [Concomitant]
     Active Substance: FAMOTIDINE
     Indication: Product used for unknown indication
     Route: 065
  11. EQUINE THYMOCYTE IMMUNE GLOBULIN [Concomitant]
     Active Substance: EQUINE THYMOCYTE IMMUNE GLOBULIN
     Indication: Product used for unknown indication
     Route: 065
  12. ACETAMINOPHEN [Concomitant]
     Active Substance: ACETAMINOPHEN
     Indication: Product used for unknown indication
     Route: 065
  13. AMLODIPINE [Concomitant]
     Active Substance: AMLODIPINE BESYLATE
     Indication: Product used for unknown indication
     Route: 065
  14. CHOLECALCIFEROL [Concomitant]
     Active Substance: CHOLECALCIFEROL
     Indication: Product used for unknown indication
     Route: 065
  15. CIPROFLOXACIN [Concomitant]
     Active Substance: CIPROFLOXACIN
     Indication: Product used for unknown indication
     Route: 065
  16. CLONAZEPAM [Concomitant]
     Active Substance: CLONAZEPAM
     Indication: Product used for unknown indication
     Route: 065
  17. CYANOCOBALAMIN [Concomitant]
     Active Substance: CYANOCOBALAMIN
     Indication: Product used for unknown indication
     Route: 065
  18. DIPHENHYDRAMINE [Concomitant]
     Active Substance: DIPHENHYDRAMINE
     Indication: Product used for unknown indication
     Route: 065
  19. EPINEPHRINE [Concomitant]
     Active Substance: EPINEPHRINE
     Indication: Product used for unknown indication
     Route: 065
  20. FLUCONAZOLE [Concomitant]
     Active Substance: FLUCONAZOLE
     Indication: Product used for unknown indication
     Route: 065
  21. FOLIC ACID [Concomitant]
     Active Substance: FOLIC ACID
     Indication: Product used for unknown indication
     Route: 065
  22. HYDROCORTISONE [Concomitant]
     Active Substance: HYDROCORTISONE
     Indication: Product used for unknown indication
     Route: 065
  23. MELATONIN [Concomitant]
     Active Substance: MELATONIN
     Indication: Product used for unknown indication
     Route: 065
  24. MEPERIDINE [Concomitant]
     Active Substance: MEPERIDINE
     Indication: Product used for unknown indication
     Route: 065
  25. BIOTIN [Concomitant]
     Active Substance: BIOTIN
     Indication: Product used for unknown indication
     Route: 065
  26. PREDNISONE [Concomitant]
     Active Substance: PREDNISONE
     Indication: Nausea
     Route: 042
     Dates: start: 20250507
  27. PREDNISONE [Concomitant]
     Active Substance: PREDNISONE
     Indication: Vomiting
  28. ONDANSETRON [Concomitant]
     Active Substance: ONDANSETRON
     Indication: Nausea
     Route: 042
     Dates: start: 20250507
  29. ONDANSETRON [Concomitant]
     Active Substance: ONDANSETRON
     Indication: Vomiting
  30. ALBUTEROL [Concomitant]
     Active Substance: ALBUTEROL
     Indication: Product used for unknown indication
     Route: 065
  31. DEXTROSE\SODIUM CHLORIDE [Concomitant]
     Active Substance: DEXTROSE\SODIUM CHLORIDE
     Indication: Product used for unknown indication
     Route: 065
  32. SULFAMETHOXAZOLE\TRIMETHOPRIM [Concomitant]
     Active Substance: SULFAMETHOXAZOLE\TRIMETHOPRIM
     Indication: Prophylaxis
     Dosage: 1 DOSAGE FORM, QD, QMON/WED/FRI FOR 90 DAYS
     Route: 048
     Dates: start: 20250509, end: 20250812
  33. ZOPICLONE [Concomitant]
     Active Substance: ZOPICLONE
     Indication: Insomnia
     Dosage: 3.75 MILLIGRAM, Q.H.S., PRN
     Route: 048
     Dates: start: 20250505
  34. DIETARY SUPPLEMENT\HERBALS [Concomitant]
     Active Substance: DIETARY SUPPLEMENT\HERBALS
     Indication: Product used for unknown indication
     Dosage: 1 DOSAGE FORM, QD PRN
     Route: 048
  35. PROBIOTICS NOS [Concomitant]
     Active Substance: PROBIOTICS NOS
     Indication: Product used for unknown indication
     Dosage: 1 DOSAGE FORM, QD PRN
     Route: 048

REACTIONS (4)
  - Volvulus [Unknown]
  - Dehydration [Unknown]
  - Platelet count decreased [Unknown]
  - Haemoglobin decreased [Unknown]
